FAERS Safety Report 26136905 (Version 1)
Quarter: 2025Q4

REPORT INFORMATION
  Report Type: Spontaneous
  Country: US (occurrence: None)
  Receive Date: 20251209
  Receipt Date: 20251209
  Transmission Date: 20260118
  Serious: No
  Sender: HALOZYME
  Company Number: US-HALOZYME THERAPEUTICS, INC.-2024-US-TX -11069

PATIENT
  Age: 32 Year

DRUGS (2)
  1. XYOSTED [Suspect]
     Active Substance: TESTOSTERONE ENANTHATE
     Indication: Blood testosterone decreased
     Dosage: 50 MG/0.5ML
     Route: 058
  2. XYOSTED [Suspect]
     Active Substance: TESTOSTERONE ENANTHATE
     Dosage: 75 MG/0.5ML
     Route: 058

REACTIONS (4)
  - Pain in extremity [Unknown]
  - Feeling hot [Unknown]
  - Product dose omission issue [Unknown]
  - Drug ineffective [Unknown]
